FAERS Safety Report 8030818-8 (Version None)
Quarter: 2012Q1

REPORT INFORMATION
  Report Type: 
  Country: None (occurrence: None)
  Receive Date: 20120109
  Receipt Date: 20120103
  Transmission Date: 20120608
  Serious: Yes (Hospitalization)
  Sender: FDA-Public Use
  Company Number: FR-PFIZER INC-2012000594

PATIENT
  Age: 51 Year
  Sex: Female

DRUGS (10)
  1. PIPERACILLIN AND TAZOBACTAM [Suspect]
     Indication: PELVIC ABSCESS
     Dosage: UNK G, 3X/DAY
     Route: 041
     Dates: start: 20110713, end: 20110829
  2. GENTAMICIN [Concomitant]
     Indication: PELVIC ABSCESS
     Dosage: UNK
     Dates: start: 20110722
  3. LASIX [Concomitant]
  4. POTASSIUM CHLORIDE [Concomitant]
  5. ZOLPIDEM [Concomitant]
  6. ORGARAN [Concomitant]
  7. TARGOCID [Suspect]
     Indication: PELVIC ABSCESS
     Dosage: 4 G, 3X/DAY
     Route: 041
     Dates: start: 20110805, end: 20110829
  8. VANCOMYCIN [Concomitant]
     Indication: PELVIC ABSCESS
     Dosage: UNK
     Dates: start: 20110722
  9. PANTOPRAZOLE [Concomitant]
  10. PARACETAMOL [Concomitant]

REACTIONS (1)
  - FEBRILE NEUTROPENIA [None]
